FAERS Safety Report 9969630 (Version 1)
Quarter: 2014Q1

REPORT INFORMATION
  Report Type: Spontaneous
  Country: US (occurrence: None)
  Receive Date: 20140304
  Receipt Date: 20140304
  Transmission Date: 20141002
  Serious: Yes (Other)
  Sender: FDA-Public Use
  Company Number: FK201400623

PATIENT
  Age: 66 Year
  Sex: Male

DRUGS (3)
  1. LIDOCAINE [Suspect]
     Indication: LOCAL ANAESTHESIA
     Route: 058
  2. BETAMETHASONE [Concomitant]
  3. LIDOCAINE [Concomitant]

REACTIONS (5)
  - Skin necrosis [None]
  - Injection site reaction [None]
  - Injection site pruritus [None]
  - Injection site discharge [None]
  - Injection site exfoliation [None]
